FAERS Safety Report 10153377 (Version 1)
Quarter: 2014Q2

REPORT INFORMATION
  Report Type: Spontaneous
  Country: US (occurrence: US)
  Receive Date: 20140505
  Receipt Date: 20140505
  Transmission Date: 20141212
  Serious: No
  Sender: FDA-Public Use
  Company Number: US-ASTRAZENECA-2014SE02023

PATIENT
  Age: 85 Year
  Sex: Female
  Weight: 61.2 kg

DRUGS (22)
  1. OMEPRAZOLE [Suspect]
     Indication: BARRETT^S OESOPHAGUS
     Route: 048
     Dates: start: 2004
  2. OMEPRAZOLE [Suspect]
     Indication: GASTROOESOPHAGEAL REFLUX DISEASE
     Route: 048
     Dates: start: 2004
  3. PROLEA [Concomitant]
     Indication: BONE DISORDER
     Dosage: Q6M
     Dates: start: 2013
  4. ALBUTEROL [Concomitant]
     Indication: CHRONIC OBSTRUCTIVE PULMONARY DISEASE
     Dosage: 2 PUFFS BID
     Route: 055
  5. ASA PRO [Concomitant]
     Indication: CHRONIC OBSTRUCTIVE PULMONARY DISEASE
     Route: 055
  6. SMART FIBER [Concomitant]
     Indication: CONSTIPATION
     Dosage: PRN
     Route: 048
  7. BISOPROLOL [Concomitant]
     Indication: BLOOD PRESSURE ABNORMAL
     Route: 048
  8. SENAKOT S [Concomitant]
     Indication: CONSTIPATION
     Route: 048
  9. EXFORGE [Concomitant]
     Indication: BLOOD PRESSURE ABNORMAL
     Dosage: 10/320 MG AC
     Route: 048
  10. FLUTICASONE [Concomitant]
     Indication: ASTHMA
     Dosage: 2 PUFFS DAILY
     Route: 055
  11. FLUTICASONE [Concomitant]
     Indication: CHRONIC OBSTRUCTIVE PULMONARY DISEASE
     Dosage: 2 PUFFS DAILY
     Route: 055
  12. KRILL OIL [Concomitant]
     Dosage: DAILY
     Route: 048
  13. LINSESS [Concomitant]
     Indication: CONSTIPATION
     Dosage: 290 MCG AC
     Route: 048
  14. L THYROXINE [Concomitant]
     Indication: THYROID DISORDER
     Dosage: 75MCG AC
     Route: 048
  15. PENTOXIFYLINE [Concomitant]
     Indication: POOR PERIPHERAL CIRCULATION
     Route: 048
  16. ASPIRIN [Concomitant]
  17. QVAR [Concomitant]
     Indication: ASTHMA
     Dosage: 80 MCG, 2 PUFFS BID BID
     Route: 055
  18. QVAR [Concomitant]
     Indication: CHRONIC OBSTRUCTIVE PULMONARY DISEASE
     Dosage: 80 MCG, 2 PUFFS BID BID
     Route: 055
  19. RESTASIS [Concomitant]
     Indication: DRY EYE
     Dosage: BID
     Route: 050
  20. VAGIFEM [Concomitant]
     Indication: DIAGNOSTIC PROCEDURE
     Dosage: PRN
     Route: 050
  21. VITAMIN D [Concomitant]
     Indication: SUPPLEMENTATION THERAPY
     Route: 048
  22. VITAMIN E [Concomitant]
     Indication: MEMORY IMPAIRMENT
     Route: 048

REACTIONS (5)
  - Bone density decreased [Recovering/Resolving]
  - Memory impairment [Unknown]
  - Blood sodium decreased [Unknown]
  - Abdominal pain upper [Unknown]
  - Drug dose omission [Unknown]
